FAERS Safety Report 17211663 (Version 2)
Quarter: 2019Q4

REPORT INFORMATION
  Report Type: Report from Study
  Country: US (occurrence: US)
  Receive Date: 20191229
  Receipt Date: 20191231
  Transmission Date: 20200122
  Serious: Yes (Other)
  Sender: FDA-Public Use
  Company Number: US-ROCHE-2502874

PATIENT
  Sex: Male

DRUGS (1)
  1. CELLCEPT [Suspect]
     Active Substance: MYCOPHENOLATE MOFETIL\MYCOPHENOLATE MOFETIL HYDROCHLORIDE
     Indication: PRODUCT USED FOR UNKNOWN INDICATION
     Dosage: 250 MG CAPSULES
     Route: 048

REACTIONS (5)
  - Tibia fracture [Recovering/Resolving]
  - Weight abnormal [Unknown]
  - Hernia [Unknown]
  - Fibula fracture [Recovering/Resolving]
  - Muscular weakness [Unknown]
